FAERS Safety Report 18167823 (Version 2)
Quarter: 2020Q3

REPORT INFORMATION
  Report Type: Report from Study
  Country: CA (occurrence: CA)
  Receive Date: 20200819
  Receipt Date: 20200909
  Transmission Date: 20201103
  Serious: Yes (Other)
  Sender: FDA-Public Use
  Company Number: CA-GLAXOSMITHKLINE-CA2019AMR177855

PATIENT
  Sex: Female

DRUGS (3)
  1. BREO ELLIPTA [Suspect]
     Active Substance: FLUTICASONE FUROATE\VILANTEROL TRIFENATATE
     Indication: ASTHMA
     Dosage: 1 PUFF(S), UNK
  2. SALBUTAMOL SULPHATE [Suspect]
     Active Substance: ALBUTEROL SULFATE
     Indication: ASTHMA
     Dosage: 2 PUFF(S), 100 MCG
     Route: 042
  3. NUCALA [Suspect]
     Active Substance: MEPOLIZUMAB
     Indication: ASTHMA
     Dosage: 100 MG, Z(MONTHLY)
     Route: 042
     Dates: start: 20191016

REACTIONS (9)
  - Blood count abnormal [Unknown]
  - Asthma [Unknown]
  - Wheezing [Unknown]
  - Pneumonitis [Unknown]
  - Sleep disorder due to a general medical condition [Unknown]
  - Rheumatoid arthritis [Unknown]
  - Loss of personal independence in daily activities [Unknown]
  - Dyspnoea [Unknown]
  - Sleep apnoea syndrome [Unknown]
